FAERS Safety Report 6190214-5 (Version None)
Quarter: 2009Q2

REPORT INFORMATION
  Report Type: 
  Country: None (occurrence: None)
  Receive Date: 20090511
  Receipt Date: 20090102
  Transmission Date: 20091009
  Serious: Yes (Other)
  Sender: FDA-Public Use
  Company Number: 2008BH011539

PATIENT
  Age: 59 Year
  Sex: Female

DRUGS (12)
  1. CYTOXAN [Suspect]
     Indication: BREAST CANCER
     Dates: start: 20080610
  2. DOXORUBICIN HYDROCHLORIDE [Suspect]
     Indication: BREAST CANCER
     Dosage: IV
     Route: 042
     Dates: start: 20080805
  3. TAXOTERE [Suspect]
     Indication: BREAST CANCER
     Dosage: IV
     Route: 042
     Dates: start: 20080805
  4. PREDNISONE [Concomitant]
  5. DAPSONE [Concomitant]
  6. PANTOPRAZOLE SODIUM [Concomitant]
  7. DEXAMETHASONE [Concomitant]
  8. EMEND [Concomitant]
  9. VALSARTAN [Concomitant]
  10. FLONASE [Concomitant]
  11. COMPAZINE [Concomitant]
  12. ALOXI [Concomitant]

REACTIONS (7)
  - BODY TEMPERATURE FLUCTUATION [None]
  - DYSPNOEA [None]
  - HEADACHE [None]
  - NASAL DISCOMFORT [None]
  - PARAESTHESIA [None]
  - PNEUMONITIS [None]
  - RED BLOOD CELL COUNT DECREASED [None]
